FAERS Safety Report 23626601 (Version 1)
Quarter: 2024Q1

REPORT INFORMATION
  Report Type: Other
  Country: RU (occurrence: None)
  Receive Date: 20240313
  Receipt Date: 20240313
  Transmission Date: 20240409
  Serious: Yes (Hospitalization)
  Sender: FDA-Public Use
  Company Number: RU-ROCHE-3523555

PATIENT
  Sex: Female
  Weight: 65 kg

DRUGS (3)
  1. MABTHERA [Suspect]
     Active Substance: RITUXIMAB
     Indication: Follicular lymphoma
     Route: 065
     Dates: start: 202203, end: 202208
  2. GAZYVA [Suspect]
     Active Substance: OBINUTUZUMAB
     Indication: Follicular lymphoma
     Route: 042
  3. LENALIDOMIDE [Suspect]
     Active Substance: LENALIDOMIDE
     Indication: Follicular lymphoma
     Route: 065

REACTIONS (1)
  - Lymphadenopathy [Not Recovered/Not Resolved]
